FAERS Safety Report 7472850-9 (Version None)
Quarter: 2011Q1

REPORT INFORMATION
  Report Type: 
  Country: None (occurrence: None)
  Receive Date: 20110302
  Receipt Date: 20100628
  Transmission Date: 20110831
  Serious: Yes (Hospitalization, Other)
  Sender: FDA-Public Use
  Company Number: 163-21880-10050509

PATIENT
  Age: 80 Year
  Sex: Female

DRUGS (5)
  1. WARFARIN SODIUM [Concomitant]
  2. REVLIMID [Suspect]
     Indication: MULTIPLE MYELOMA
     Dosage: 15 MG, DAILY X 21 DAYS, PO; 25 MG, DAILY X 14 DAYS, PO
     Route: 048
     Dates: start: 20090312, end: 20100428
  3. ZOMETA [Concomitant]
  4. VELCADE [Concomitant]
  5. COUMADIN [Concomitant]

REACTIONS (1)
  - BREAST CANCER [None]
